FAERS Safety Report 8827989 (Version 1)
Quarter: 2012Q4

REPORT INFORMATION
  Report Type: 
  Country: CH (occurrence: CH)
  Receive Date: 20121005
  Receipt Date: 20121005
  Transmission Date: 20130627
  Serious: Yes (Hospitalization)
  Sender: FDA-Public Use
  Company Number: CH-JNJFOC-20120912558

PATIENT
  Age: 42 Year
  Sex: Male
  Weight: 40 kg

DRUGS (7)
  1. PREZISTA [Suspect]
     Indication: HIV INFECTION
     Route: 048
     Dates: start: 20120608, end: 20120718
  2. PREZISTA [Suspect]
     Indication: HIV INFECTION
     Route: 048
     Dates: start: 20120730
  3. PARACETAMOL [Suspect]
     Route: 065
  4. PARACETAMOL [Suspect]
     Indication: ARTHRALGIA
     Dosage: 10 preceding days
     Route: 065
  5. ANTIRETROVIRAL MEDICATIONS [Suspect]
     Indication: HIV INFECTION
     Route: 065
  6. ANTIRETROVIRAL MEDICATIONS [Suspect]
     Indication: HIV INFECTION
     Route: 065
     Dates: start: 20120730
  7. MULTIPLE MEDICATIONS UNSPECIFIED [Suspect]
     Indication: PRODUCT USED FOR UNKNOWN INDICATION
     Route: 065
     Dates: end: 20120730

REACTIONS (1)
  - Drug-induced liver injury [Unknown]
